FAERS Safety Report 24904848 (Version 1)
Quarter: 2025Q1

REPORT INFORMATION
  Report Type: Spontaneous
  Country: US (occurrence: None)
  Receive Date: 20250130
  Receipt Date: 20250130
  Transmission Date: 20250409
  Serious: No
  Sender: FDA-CTU
  Company Number: None

PATIENT
  Age: 72 Year
  Sex: Female
  Weight: 50.4 kg

DRUGS (8)
  1. ALBUTEROL SULFATE [Suspect]
     Active Substance: ALBUTEROL SULFATE
     Indication: Obstruction
     Dosage: OTHER STRENGTH : MG/3 ML;?OTHER QUANTITY : 1 AMPULE;?FREQUENCY : EVERY 6 HOURS;?
     Route: 055
     Dates: start: 20250114
  2. estrodiol patch [Concomitant]
  3. PROGESTERONE [Concomitant]
     Active Substance: PROGESTERONE
  4. vios aerosol delivery system [Concomitant]
  5. MINERALS\VITAMINS [Concomitant]
     Active Substance: MINERALS\VITAMINS
  6. citrical plus d [Concomitant]
  7. BORON [Concomitant]
     Active Substance: BORON
  8. K2 M7 [Concomitant]

REACTIONS (2)
  - Tremor [None]
  - Chills [None]

NARRATIVE: CASE EVENT DATE: 20250129
